FAERS Safety Report 8500316-3 (Version None)
Quarter: 2012Q3

REPORT INFORMATION
  Report Type: 
  Country: None (occurrence: None)
  Receive Date: 20120705
  Receipt Date: 20120705
  Transmission Date: 20120928
  Serious: Yes (Hospitalization, Other)
  Sender: FDA-Public Use
  Company Number: None

PATIENT
  Age: 28 Year
  Sex: Male
  Weight: 77.1115 kg

DRUGS (2)
  1. ABILIFY [Suspect]
     Indication: ADJUSTMENT DISORDER
     Dosage: 1MG - HALF 2MG TABLET 1 TABLET IN AM PO
     Route: 048
     Dates: start: 20110401, end: 20110408
  2. ARIPIPRAZOLE [Suspect]
     Indication: ADJUSTMENT DISORDER
     Dosage: 2MB -WHOLE 2MG TABLET- 1 TABLET IN AM PO
     Route: 048
     Dates: start: 20110409, end: 20110601

REACTIONS (8)
  - SYNCOPE [None]
  - HEADACHE [None]
  - NAUSEA [None]
  - LOSS OF EMPLOYMENT [None]
  - DIZZINESS [None]
  - ANXIETY [None]
  - PANIC ATTACK [None]
  - VOMITING [None]
